FAERS Safety Report 8296634-7 (Version None)
Quarter: 2012Q2

REPORT INFORMATION
  Report Type: 
  Country: None (occurrence: None)
  Receive Date: 20120418
  Receipt Date: 20120418
  Transmission Date: 20120825
  Serious: No
  Sender: FDA-Public Use
  Company Number: None

PATIENT
  Age: 49 Year
  Sex: Female
  Weight: 90.718 kg

DRUGS (1)
  1. MIRENA [Suspect]
     Indication: CONTRACEPTION
     Dates: start: 20111102, end: 20120416

REACTIONS (11)
  - MALAISE [None]
  - PAIN IN EXTREMITY [None]
  - DYSSTASIA [None]
  - RHEUMATOID ARTHRITIS [None]
  - ACTIVITIES OF DAILY LIVING IMPAIRED [None]
  - MUSCULOSKELETAL PAIN [None]
  - ARTHRALGIA [None]
  - MUSCULOSKELETAL STIFFNESS [None]
  - BACK PAIN [None]
  - JOINT SWELLING [None]
  - INSOMNIA [None]
